FAERS Safety Report 8927934 (Version 1)
Quarter: 2012Q4

REPORT INFORMATION
  Report Type: Spontaneous
  Country: US (occurrence: None)
  Receive Date: 20121126
  Receipt Date: 20121126
  Transmission Date: 20130627
  Serious: Yes (Hospitalization)
  Sender: FDA-Public Use
  Company Number: None

PATIENT
  Age: 85 Year
  Sex: Female
  Weight: 70.31 kg

DRUGS (1)
  1. LEVOFLOXACIN [Suspect]
     Indication: CHEST COLD
     Dosage: 500 mg 1 daily
     Dates: start: 20120912, end: 20120922

REACTIONS (3)
  - Bursitis [None]
  - Pain in extremity [None]
  - Gait disturbance [None]
